FAERS Safety Report 8336264-1 (Version None)
Quarter: 2012Q2

REPORT INFORMATION
  Report Type: 
  Country: None (occurrence: None)
  Receive Date: 20120504
  Receipt Date: 20120423
  Transmission Date: 20120825
  Serious: Yes (Hospitalization, Other)
  Sender: FDA-Public Use
  Company Number: JP-PFIZER INC-2011127490

PATIENT
  Age: 76 Year
  Sex: Male
  Weight: 71 kg

DRUGS (16)
  1. FLUOROURACIL [Suspect]
     Dosage: 4500 MG, ONCE IN 2 DAYS
     Route: 041
     Dates: start: 20110422, end: 20110422
  2. FLUOROURACIL [Suspect]
     Dosage: 750 MG, 1X/DAY
     Route: 040
     Dates: start: 20110506, end: 20110506
  3. VEEN-F [Concomitant]
     Dosage: UNK
     Dates: start: 20110512, end: 20110517
  4. NEUTROGIN [Concomitant]
     Dosage: UNK
     Dates: start: 20110513, end: 20110518
  5. FLUOROURACIL [Suspect]
     Dosage: 4500 MG, ONCE IN 2 DAYS
     Route: 041
     Dates: start: 20110506, end: 20110506
  6. WARFARIN [Concomitant]
  7. IRINOTECAN HCL [Suspect]
     Indication: COLORECTAL CANCER
     Dosage: 300 MG, 1X/DAY
     Route: 041
     Dates: start: 20110422, end: 20110422
  8. HANGE-SHASHIN-TO [Concomitant]
     Dosage: UNK
     Dates: start: 20110512, end: 20110601
  9. MEROPENEM [Concomitant]
     Dosage: UNK
     Dates: start: 20110513, end: 20110518
  10. LOPERAMIDE HCL [Concomitant]
     Dosage: UNK
     Dates: start: 20110514, end: 20110601
  11. FLUOROURACIL [Suspect]
     Indication: COLORECTAL CANCER
     Dosage: 750 MG, 1X/DAY
     Route: 040
     Dates: start: 20110422, end: 20110422
  12. IRINOTECAN HCL [Suspect]
     Dosage: 300 MG, 1X/DAY
     Route: 041
     Dates: start: 20110506, end: 20110506
  13. CEFAZOLIN SODIUM [Concomitant]
     Dosage: UNK
     Dates: start: 20110512, end: 20110601
  14. CALCIUM LEVOFOLINATE [Concomitant]
     Indication: COLORECTAL CANCER
     Dosage: 380 MG/BODY (218.4 MG/M2)
     Route: 041
     Dates: start: 20110422, end: 20110506
  15. METILON [Concomitant]
     Dosage: UNK
     Dates: start: 20110513, end: 20110521
  16. VANCOMYCIN [Concomitant]
     Dosage: UNK
     Dates: start: 20110515, end: 20110521

REACTIONS (11)
  - NEUTROPENIA [None]
  - HAEMOGLOBIN DECREASED [None]
  - PYREXIA [None]
  - THROMBOCYTOPENIA [None]
  - MELAENA [None]
  - SHOCK [None]
  - LEUKOPENIA [None]
  - FEBRILE NEUTROPENIA [None]
  - PSEUDOMEMBRANOUS COLITIS [None]
  - DIARRHOEA [None]
  - PROTHROMBIN TIME PROLONGED [None]
